FAERS Safety Report 8719225 (Version 5)
Quarter: 2013Q3

REPORT INFORMATION
  Report Type: Spontaneous
  Country: US (occurrence: US)
  Receive Date: 20120813
  Receipt Date: 20130820
  Transmission Date: 20140515
  Serious: Yes (Hospitalization, Other)
  Sender: FDA-Public Use
  Company Number: US-BIOGENIDEC-2012BI029462

PATIENT
  Age: 67 Year
  Sex: Female

DRUGS (6)
  1. AVONEX [Suspect]
     Indication: MULTIPLE SCLEROSIS
     Route: 030
     Dates: start: 20120718, end: 20120725
  2. AVONEX [Suspect]
     Indication: MULTIPLE SCLEROSIS
     Route: 030
     Dates: start: 20120829, end: 201211
  3. AVONEX [Suspect]
     Indication: MULTIPLE SCLEROSIS
     Route: 030
     Dates: start: 201211
  4. NIFEDICAL XL [Concomitant]
     Indication: HYPERTENSION
     Dates: start: 1990
  5. ATENOLOL [Concomitant]
     Indication: HYPERTENSION
     Dates: start: 1990
  6. LOSARTAN [Concomitant]
     Indication: HYPERTENSION
     Dates: start: 1990

REACTIONS (15)
  - Hypotension [Recovered/Resolved]
  - Heart rate decreased [Recovered/Resolved]
  - Multiple sclerosis [Recovered/Resolved]
  - Anaphylactic shock [Recovered/Resolved]
  - Arterial occlusive disease [Unknown]
  - Abdominal pain upper [Recovered/Resolved with Sequelae]
  - Back pain [Recovered/Resolved with Sequelae]
  - Chest pain [Not Recovered/Not Resolved]
  - Blindness transient [Recovered/Resolved]
  - Injection site haemorrhage [Recovered/Resolved]
  - Increased tendency to bruise [Not Recovered/Not Resolved]
  - Injection site reaction [Not Recovered/Not Resolved]
  - Nausea [Not Recovered/Not Resolved]
  - Muscular weakness [Not Recovered/Not Resolved]
  - Headache [Recovered/Resolved]
